FAERS Safety Report 6868263-0 (Version None)
Quarter: 2010Q3

REPORT INFORMATION
  Report Type: 
  Country: None (occurrence: None)
  Receive Date: 20100722
  Receipt Date: 20080702
  Transmission Date: 20110219
  Serious: No
  Sender: FDA-Public Use
  Company Number: US-PFIZER INC-2008043634

PATIENT
  Sex: Female
  Weight: 108.6 kg

DRUGS (9)
  1. CHANTIX [Suspect]
     Indication: SMOKING CESSATION THERAPY
     Dates: start: 20080513
  2. BENICAR [Concomitant]
  3. POTASSIUM [Concomitant]
  4. NIASPAN [Concomitant]
  5. DITROPAN [Concomitant]
  6. LIPITOR [Concomitant]
  7. TOPROL-XL [Concomitant]
  8. LASIX [Concomitant]
  9. WARFARIN SODIUM [Concomitant]

REACTIONS (3)
  - HEADACHE [None]
  - LACRIMATION INCREASED [None]
  - PRODUCTIVE COUGH [None]
